FAERS Safety Report 21990762 (Version 1)
Quarter: 2023Q1

REPORT INFORMATION
  Report Type: Spontaneous
  Country: US (occurrence: US)
  Receive Date: 20230214
  Receipt Date: 20230214
  Transmission Date: 20230417
  Serious: No
  Sender: FDA-Public Use
  Company Number: US-ANIPHARMA-2022-US-028894

PATIENT
  Age: 85 Year
  Sex: Male

DRUGS (1)
  1. CORTICOTROPIN [Suspect]
     Active Substance: CORTICOTROPIN
     Indication: Gout
     Dosage: INJECT 80 UNITS (1ML) SUBCUTANEOUSLY DAILY UNTIL FLARE RESOLVES AS DIRECTED
     Route: 058
     Dates: start: 202211

REACTIONS (3)
  - Pain in extremity [Unknown]
  - Pain [Unknown]
  - Drug ineffective [Unknown]

NARRATIVE: CASE EVENT DATE: 20221209
